FAERS Safety Report 14993099 (Version 1)
Quarter: 2018Q2

REPORT INFORMATION
  Report Type: Spontaneous
  Country: US (occurrence: US)
  Receive Date: 20180518
  Receipt Date: 20180518
  Transmission Date: 20180711
  Serious: Yes (Life-Threatening, Hospitalization, Disabling)
  Sender: FDA-Public Use
  Company Number: None

PATIENT
  Age: 77 Year
  Sex: Male
  Weight: 109.41 kg

DRUGS (1)
  1. DULOXETIN 20 MG CAPSUL [Suspect]
     Active Substance: DULOXETINE
     Dates: start: 20180420, end: 20180424

REACTIONS (7)
  - Muscle tone disorder [None]
  - Fall [None]
  - Dysarthria [None]
  - Gait inability [None]
  - Back pain [None]
  - Dyspnoea [None]
  - Pain [None]

NARRATIVE: CASE EVENT DATE: 20180320
